FAERS Safety Report 19034466 (Version 1)
Quarter: 2021Q1

REPORT INFORMATION
  Report Type: Report from Study
  Country: GB (occurrence: GB)
  Receive Date: 20210319
  Receipt Date: 20210319
  Transmission Date: 20210420
  Serious: Yes (Life-Threatening)
  Sender: FDA-Public Use
  Company Number: GB-BAYER-2021-103005

PATIENT
  Age: 69 Year
  Sex: Female
  Weight: 72 kg

DRUGS (8)
  1. APROTININ 10,000 KIU/ML INJECTION BP (APROTININ) [Suspect]
     Active Substance: APROTININ
     Indication: AORTIC ANEURYSM REPAIR
  2. APROTININ 10,000 KIU/ML INJECTION BP (APROTININ) [Suspect]
     Active Substance: APROTININ
     Indication: CARDIOPULMONARY BYPASS
     Dosage: UNK
     Dates: start: 20171005, end: 20171005
  3. PLATELETS [Concomitant]
     Active Substance: HUMAN PLATELET, ALLOGENIC
     Indication: PRODUCT USED FOR UNKNOWN INDICATION
     Dosage: 400 MILLILITRE
     Dates: start: 20171005, end: 201710
  4. HEPARIN [Concomitant]
     Active Substance: HEPARIN SODIUM
     Indication: ANTICOAGULANT THERAPY
     Dosage: 30 INTERNATIONAL UNIT
     Route: 042
     Dates: start: 20171005, end: 201710
  5. RED BLOOD CELLS [Concomitant]
     Active Substance: HUMAN RED BLOOD CELL
     Dosage: 500 MILLILITRE
     Dates: start: 20171005, end: 201710
  6. CRYOPRECIPITATE [Concomitant]
     Active Substance: CRYOPRECIPITATED ANTIHEMOPHILIC FACTOR (HUMAN)
     Dosage: 500 MILLILITRE
     Dates: start: 20171005, end: 201710
  7. TRANEXAMIC ACID. [Concomitant]
     Active Substance: TRANEXAMIC ACID
     Dosage: UNK
     Dates: start: 201710, end: 201710
  8. FRESH FROZEN PLASMA [Concomitant]
     Active Substance: HUMAN PLASMA
     Dosage: UNK
     Dates: start: 20171005, end: 201710

REACTIONS (4)
  - Cardiac arrest [Recovered/Resolved]
  - Anaphylactic reaction [Recovered/Resolved]
  - Electrocardiogram ST segment elevation [Recovered/Resolved]
  - Off label use [Recovered/Resolved]

NARRATIVE: CASE EVENT DATE: 20171005
